FAERS Safety Report 8411542-6 (Version None)
Quarter: 2012Q2

REPORT INFORMATION
  Report Type: 
  Country: None (occurrence: None)
  Receive Date: 20120605
  Receipt Date: 20120510
  Transmission Date: 20120825
  Serious: No
  Sender: FDA-Public Use
  Company Number: US-AMGEN-USASP2012029640

PATIENT
  Age: 54 Year
  Sex: Female

DRUGS (1)
  1. ENBREL [Suspect]
     Indication: RHEUMATOID ARTHRITIS
     Dosage: 25 MG, 2 TIMES/WK
     Dates: start: 20000101

REACTIONS (8)
  - WEIGHT INCREASED [None]
  - FEELING ABNORMAL [None]
  - FATIGUE [None]
  - MEMORY IMPAIRMENT [None]
  - FEELING HOT [None]
  - MENOPAUSE [None]
  - RHEUMATOID ARTHRITIS [None]
  - ERYTHEMA [None]
